FAERS Safety Report 25698120 (Version 1)
Quarter: 2025Q3

REPORT INFORMATION
  Report Type: Spontaneous
  Country: JP (occurrence: JP)
  Receive Date: 20250819
  Receipt Date: 20250819
  Transmission Date: 20251021
  Serious: Yes (Death, Hospitalization, Other)
  Sender: MERCK SHARP & DOHME LLC
  Company Number: JP-009507513-2301254

PATIENT
  Age: 77 Year
  Sex: Female

DRUGS (4)
  1. KEYTRUDA [Suspect]
     Active Substance: PEMBROLIZUMAB
     Indication: Cervix carcinoma stage IV
     Dosage: 4 COURSES
     Route: 041
     Dates: start: 202408, end: 202506
  2. CARBOPLATIN [Suspect]
     Active Substance: CARBOPLATIN
     Indication: Cervix carcinoma stage IV
     Dosage: AUC5 ONCE EVERY 3 WEEKS
     Route: 065
     Dates: start: 202408, end: 202506
  3. PACLITAXEL [Suspect]
     Active Substance: PACLITAXEL
     Indication: Cervix carcinoma stage IV
     Route: 065
     Dates: start: 202408, end: 202506
  4. BEVACIZUMAB [Suspect]
     Active Substance: BEVACIZUMAB
     Indication: Cervix carcinoma stage IV
     Route: 065

REACTIONS (5)
  - Interstitial lung disease [Fatal]
  - Malignant neoplasm progression [Unknown]
  - Malaise [Unknown]
  - Asthenia [Unknown]
  - Activities of daily living decreased [Unknown]

NARRATIVE: CASE EVENT DATE: 20250601
